FAERS Safety Report 7744039-7 (Version None)
Quarter: 2011Q3

REPORT INFORMATION
  Report Type: 
  Country: None (occurrence: None)
  Receive Date: 20110909
  Receipt Date: 20110909
  Transmission Date: 20111222
  Serious: No
  Sender: FDA-Public Use
  Company Number: None

PATIENT
  Sex: Female
  Weight: 77.1115 kg

DRUGS (1)
  1. ESTRADIOL VALERATE [Suspect]
     Indication: HORMONE THERAPY
     Dosage: 1/2 CC 2 PER MO. INJECT
     Dates: start: 20110607, end: 20110622

REACTIONS (4)
  - BREAST SWELLING [None]
  - BREAST DISORDER [None]
  - BURNING SENSATION [None]
  - BREAST PAIN [None]
